FAERS Safety Report 6690722-4 (Version None)
Quarter: 2010Q2

REPORT INFORMATION
  Report Type: 
  Country: None (occurrence: None)
  Receive Date: 20100420
  Receipt Date: 20100420
  Transmission Date: 20101027
  Serious: Yes (Other)
  Sender: FDA-Public Use
  Company Number: None

PATIENT
  Sex: Female

DRUGS (1)
  1. PRIALT [Suspect]
     Dosage: 600MCG AS DIRECTED INTRATHECAL PUMP
     Dates: start: 20100406

REACTIONS (2)
  - DYSPNOEA [None]
  - HEART RATE DECREASED [None]
